FAERS Safety Report 7868043-3 (Version None)
Quarter: 2011Q4

REPORT INFORMATION
  Report Type: 
  Country: None (occurrence: None)
  Receive Date: 20111028
  Receipt Date: 20111018
  Transmission Date: 20120403
  Serious: Yes (Hospitalization)
  Sender: FDA-Public Use
  Company Number: BR-ASTRAZENECA-2011SE55704

PATIENT
  Age: 96 Year
  Sex: Female

DRUGS (12)
  1. CEBION [Concomitant]
     Indication: ANTIVIRAL PROPHYLAXIS
     Dosage: PRN
     Route: 048
  2. ATACAND HCT [Suspect]
     Indication: HYPERTENSION
     Dosage: 16/2.5MG, DAILY FREQUENCY
     Route: 048
     Dates: start: 20110901, end: 20110901
  3. OMEPRAZOLE [Suspect]
     Indication: GASTROOESOPHAGEAL REFLUX DISEASE
     Route: 048
     Dates: start: 20050101, end: 20070101
  4. ATACAND HCT [Suspect]
     Dosage: 8/2.5MG, DAILY FREQUENCY
     Route: 048
     Dates: start: 20110901
  5. OMEPRAZOLE [Suspect]
     Indication: GASTRITIS PROPHYLAXIS
     Route: 048
     Dates: start: 20050101, end: 20070101
  6. OMEPRAZOLE [Suspect]
     Route: 048
     Dates: start: 20070101
  7. ATACAND HCT [Suspect]
     Indication: HYPERTENSION
     Dosage: 16/12.5 MG, DAILY FREQUENCY
     Route: 048
     Dates: start: 20050101, end: 20110901
  8. METOPROLOL SUCCINATE [Suspect]
     Indication: CARDIOVASCULAR EVENT PROPHYLAXIS
     Dosage: DAILY FREQUENCY
     Route: 048
     Dates: start: 20050101
  9. OMEPRAZOLE [Suspect]
     Route: 048
     Dates: start: 20070101
  10. OMEPRAZOLE [Suspect]
     Route: 048
  11. ASPIRIN [Concomitant]
     Indication: THROMBOSIS PROPHYLAXIS
     Route: 048
     Dates: start: 20050101
  12. OMEPRAZOLE [Suspect]
     Route: 048

REACTIONS (10)
  - VOMITING [None]
  - COUGH [None]
  - GASTROOESOPHAGEAL REFLUX DISEASE [None]
  - DRUG PRESCRIBING ERROR [None]
  - WRONG TECHNIQUE IN DRUG USAGE PROCESS [None]
  - HYPERHIDROSIS [None]
  - HYPERTENSIVE EMERGENCY [None]
  - DRUG INEFFECTIVE [None]
  - HYPOTENSION [None]
  - BLOOD PRESSURE INADEQUATELY CONTROLLED [None]
